FAERS Safety Report 13433736 (Version 1)
Quarter: 2017Q2

REPORT INFORMATION
  Report Type: Spontaneous
  Country: SE (occurrence: SE)
  Receive Date: 20170412
  Receipt Date: 20170412
  Transmission Date: 20170830
  Serious: Yes (Hospitalization)
  Sender: FDA-Public Use
  Company Number: SE-TEVA-757634ISR

PATIENT
  Age: 81 Year
  Sex: Female

DRUGS (3)
  1. XELODA [Concomitant]
     Active Substance: CAPECITABINE
     Route: 048
  2. FLUOROURACIL. [Suspect]
     Active Substance: FLUOROURACIL
     Route: 042
  3. CALCIUMFOLINATE [Suspect]
     Active Substance: LEUCOVORIN
     Route: 042

REACTIONS (3)
  - Agranulocytosis [Recovered/Resolved]
  - Neuropathy peripheral [Recovered/Resolved]
  - Oral mucosal blistering [Recovered/Resolved]
